FAERS Safety Report 11037667 (Version 1)
Quarter: 2015Q2

REPORT INFORMATION
  Report Type: Report from Study
  Country: FR (occurrence: FR)
  Receive Date: 20150416
  Receipt Date: 20150416
  Transmission Date: 20150821
  Serious: Yes (Other)
  Sender: FDA-Public Use
  Company Number: FR-SA-2014SA157000

PATIENT
  Age: 60 Year
  Sex: Male

DRUGS (1)
  1. CABAZITAXEL [Suspect]
     Active Substance: CABAZITAXEL
     Route: 065

REACTIONS (16)
  - Skin disorder [Unknown]
  - Fatigue [Not Recovered/Not Resolved]
  - Gastrointestinal motility disorder [Unknown]
  - Weight decreased [Unknown]
  - Bronchitis [Unknown]
  - Decreased appetite [Unknown]
  - Alopecia [Recovering/Resolving]
  - Dermal cyst [Unknown]
  - Onycholysis [Not Recovered/Not Resolved]
  - Constipation [Unknown]
  - Pain [Recovering/Resolving]
  - Peripheral sensory neuropathy [Not Recovered/Not Resolved]
  - Dyspnoea exertional [Not Recovered/Not Resolved]
  - Transfusion [Unknown]
  - Epistaxis [Unknown]
  - Diarrhoea [Unknown]

NARRATIVE: CASE EVENT DATE: 20140613
